FAERS Safety Report 6863503-6 (Version None)
Quarter: 2010Q3

REPORT INFORMATION
  Report Type: 
  Country: None (occurrence: None)
  Receive Date: 20100721
  Receipt Date: 20100713
  Transmission Date: 20110219
  Serious: Yes (Other)
  Sender: FDA-Public Use
  Company Number: RU-PFIZER INC-2010075156

PATIENT
  Sex: Female

DRUGS (2)
  1. LIPRIMAR [Suspect]
     Dosage: 20 MG, 1X/DAY
     Route: 048
     Dates: start: 20070101
  2. NIMESIL [Concomitant]
     Dosage: UNK
     Dates: end: 20100601

REACTIONS (1)
  - THROMBOCYTOPENIA [None]
